FAERS Safety Report 9143168 (Version 2)
Quarter: 2013Q1

REPORT INFORMATION
  Report Type: Report from Study
  Country: JP (occurrence: JP)
  Receive Date: 20130306
  Receipt Date: 20130315
  Transmission Date: 20140127
  Serious: Yes (Other)
  Sender: FDA-Public Use
  Company Number: JP-ASTELLAS-2013JP003129

PATIENT
  Age: 80 Year
  Sex: Female
  Weight: 60.8 kg

DRUGS (18)
  1. SOLIFENACIN [Suspect]
     Indication: HYPERTONIC BLADDER
     Dosage: 5 MG, UID/QD
     Route: 048
     Dates: start: 20120514
  2. MIRABEGRON [Suspect]
     Indication: HYPERTONIC BLADDER
     Dosage: 50 MG, UID/QD
     Route: 048
     Dates: start: 20130221
  3. MIRABEGRON [Suspect]
     Dosage: 25 MG, UID/QD
     Route: 048
     Dates: start: 20121227, end: 20130220
  4. NORVASC [Concomitant]
     Indication: HYPERTENSION
     Dosage: 5 MG, UID/QD
     Route: 048
     Dates: start: 20020425
  5. GASTER [Concomitant]
     Indication: GASTRITIS
     Dosage: 20 MG, UID/QD
     Route: 048
     Dates: start: 20120627
  6. MUCOSTA [Concomitant]
     Indication: GASTRITIS
     Dosage: 100 MG, TID
     Route: 048
     Dates: start: 20120627
  7. COIX EXTRACT [Concomitant]
     Indication: SKIN PAPILLOMA
     Dosage: 1 G, PRN
     Route: 048
     Dates: start: 20060228
  8. PYDOXAL [Concomitant]
     Indication: SEBORRHOEIC DERMATITIS
     Dosage: 20 MG, BID
     Route: 048
     Dates: start: 20040602
  9. FLAVITAN [Concomitant]
     Indication: SEBORRHOEIC DERMATITIS
     Dosage: 10 MG, BID
     Route: 048
     Dates: start: 20040602
  10. TRAVATANZ [Concomitant]
     Indication: PROPHYLAXIS
     Dosage: 2 DROPS, UNKNOWN/D
     Route: 047
     Dates: start: 20101115
  11. MUCOSTA [Concomitant]
     Indication: DRY EYE
     Dosage: 4 DROPS, UNKNOWN/D
     Route: 047
     Dates: start: 20120507
  12. HYALEIN [Concomitant]
     Indication: DRY EYE
     Dosage: 6 DROPS, UNKNOWN/D
     Route: 047
     Dates: start: 20101221
  13. TARIVID                            /00731801/ [Concomitant]
     Indication: DRY EYE
     Dosage: UNK
     Route: 047
     Dates: start: 20091207
  14. PREMARIN [Concomitant]
     Indication: OSTEOPOROSIS
     Dosage: 0.625 MG, UID/QD
     Route: 048
     Dates: start: 20091125
  15. PROGESTON                          /00115202/ [Concomitant]
     Indication: OSTEOPOROSIS
     Dosage: 2.5 MG, UID/QD
     Route: 048
     Dates: start: 20091125
  16. LOXONIN [Concomitant]
     Indication: ARTHRALGIA
     Dosage: 1 DF, PRN
     Route: 061
  17. ACUATIM [Concomitant]
     Indication: SEBORRHOEIC DERMATITIS
     Dosage: UNK
     Route: 061
  18. MUCODYNE [Concomitant]
     Indication: UPPER RESPIRATORY TRACT INFLAMMATION
     Dosage: 500 MG, TID
     Route: 048
     Dates: start: 20121226

REACTIONS (1)
  - Rib fracture [Not Recovered/Not Resolved]
